FAERS Safety Report 8842918 (Version 2)
Quarter: 2012Q4

REPORT INFORMATION
  Report Type: 
  Country: US (occurrence: US)
  Receive Date: 20121016
  Receipt Date: 20121221
  Transmission Date: 20130627
  Serious: No
  Sender: FDA-Public Use
  Company Number: US-ELI_LILLY_AND_COMPANY-US201209006231

PATIENT
  Sex: Female

DRUGS (2)
  1. FORTEO [Suspect]
     Indication: OSTEOPOROSIS
     Dosage: 20 ug, qd
     Dates: start: 20120911
  2. FORTEO [Suspect]
     Dosage: 20 ug, qd
     Dates: end: 201209

REACTIONS (15)
  - Temporomandibular joint syndrome [Unknown]
  - Abdominal discomfort [Unknown]
  - Nervousness [Unknown]
  - Crying [Unknown]
  - Anxiety [Unknown]
  - Feeling jittery [Unknown]
  - Injection site pain [Unknown]
  - Haematochezia [Not Recovered/Not Resolved]
  - Pain in extremity [Recovered/Resolved]
  - Muscle spasms [Recovered/Resolved]
  - Gait disturbance [Recovering/Resolving]
  - Nausea [Recovering/Resolving]
  - Flatulence [Recovering/Resolving]
  - Fatigue [Recovering/Resolving]
  - Dental caries [Unknown]
